FAERS Safety Report 9548117 (Version 4)
Quarter: 2014Q2

REPORT INFORMATION
  Report Type: Spontaneous
  Country: US (occurrence: US)
  Receive Date: 20130924
  Receipt Date: 20140501
  Transmission Date: 20141212
  Serious: No
  Sender: FDA-Public Use
  Company Number: US-009507513-1309USA009250

PATIENT
  Sex: Male

DRUGS (12)
  1. VICTRELIS [Suspect]
     Indication: HEPATITIS C
     Dosage: DOSE: 2400 MG, FREQUENCY: TID, STRENGHT: 200
     Route: 048
     Dates: start: 20130816
  2. REBETOL [Suspect]
     Indication: HEPATITIS C
     Dosage: DOSE: 800 MG, FREQUENCY: BID
     Route: 048
     Dates: start: 20130719, end: 2013
  3. REBETOL [Suspect]
     Dosage: 2AM AND 2PM, Q12H
     Route: 048
     Dates: start: 2013
  4. PEGINTRON [Suspect]
     Indication: HEPATITIS C
     Dosage: DOSE: 0.5 ML, QW, REDIPEN
     Dates: start: 20130719, end: 2013
  5. PEGINTRON [Suspect]
     Dosage: 50 MICROGRAM, QW, REDIPEN
     Dates: start: 2013
  6. COGENTIN [Concomitant]
     Dosage: 1600 MG, UNK
  7. OMEPRAZOLE [Concomitant]
     Dosage: 1 TAB EVERY OTHER DAY
     Route: 048
  8. METFORMIN [Concomitant]
     Dosage: UNK, QD
  9. LEXAPRO [Concomitant]
     Dosage: UNK, QD
  10. LISINOPRIL [Concomitant]
     Dosage: UNK, TID
     Route: 048
  11. RISPERDAL [Concomitant]
     Dosage: 1 MG, QAM
  12. RISPERDAL [Concomitant]
     Dosage: 4 MG, QPM

REACTIONS (12)
  - Mental disorder [Unknown]
  - Umbilical hernia [Unknown]
  - Abdominal hernia [Unknown]
  - White blood cell count decreased [Unknown]
  - Depression [Unknown]
  - Dyspnoea [Unknown]
  - Dysgeusia [Unknown]
  - Neutrophil count decreased [Unknown]
  - Memory impairment [Unknown]
  - Gastrointestinal disorder [Unknown]
  - Anxiety [Unknown]
  - Drug dose omission [Unknown]
